FAERS Safety Report 6447268-8 (Version None)
Quarter: 2009Q4

REPORT INFORMATION
  Report Type: 
  Country: None (occurrence: None)
  Receive Date: 20091119
  Receipt Date: 20091110
  Transmission Date: 20100525
  Serious: Yes (Death, Hospitalization, Other)
  Sender: FDA-Public Use
  Company Number: GR-AMGEN-UK363746

PATIENT
  Age: 79 Year
  Sex: Male
  Weight: 76 kg

DRUGS (4)
  1. VECTIBIX [Suspect]
     Indication: COLORECTAL CANCER
     Route: 042
     Dates: start: 20081216, end: 20090602
  2. ELOXATIN (SANOFI) [Suspect]
     Route: 042
     Dates: start: 20081216, end: 20090602
  3. ISOVORIN [Concomitant]
     Route: 042
     Dates: start: 20081216, end: 20090602
  4. FLUOROURACIL [Concomitant]
     Route: 042
     Dates: start: 20081216, end: 20090602

REACTIONS (2)
  - DYSPNOEA [None]
  - PULMONARY HAEMORRHAGE [None]
